FAERS Safety Report 4709738-X (Version None)
Quarter: 2005Q3

REPORT INFORMATION
  Report Type: 
  Country: None (occurrence: None)
  Receive Date: 20050707
  Receipt Date: 20050617
  Transmission Date: 20060218
  Serious: Yes (Death, Other)
  Sender: FDA-Public Use
  Company Number: USA0506101074

PATIENT
  Sex: Male

DRUGS (3)
  1. ALIMTA [Suspect]
     Indication: MESOTHELIOMA
  2. GEMZAR [Suspect]
     Indication: MESOTHELIOMA
  3. CISPLATIN [Concomitant]

REACTIONS (3)
  - DYSPNOEA [None]
  - GENERAL PHYSICAL HEALTH DETERIORATION [None]
  - OTOTOXICITY [None]
